FAERS Safety Report 5512301-4 (Version None)
Quarter: 2007Q4

REPORT INFORMATION
  Report Type: 
  Country: None (occurrence: None)
  Receive Date: 20071112
  Receipt Date: 20070926
  Transmission Date: 20080405
  Serious: No
  Sender: FDA-Public Use
  Company Number: A0684387A

PATIENT
  Age: 53 Year
  Sex: Male
  Weight: 106.8 kg

DRUGS (11)
  1. VERAMYST [Suspect]
     Dosage: 1SPR PER DAY
     Route: 045
     Dates: start: 20070724, end: 20070730
  2. NEXIUM [Concomitant]
     Route: 048
  3. ZYRTEC-D [Concomitant]
     Route: 048
  4. DURATUSS [Concomitant]
  5. RETIN-A [Concomitant]
     Indication: ACNE
  6. SINGULAIR [Concomitant]
  7. INDOCIN [Concomitant]
  8. ASPIRIN [Concomitant]
  9. PAXIL [Concomitant]
     Indication: ANXIETY
  10. KLONOPIN [Concomitant]
     Indication: ANXIETY
  11. MAXZIDE [Concomitant]
     Indication: HYPERTENSION

REACTIONS (2)
  - ANOSMIA [None]
  - IMPAIRED WORK ABILITY [None]
